FAERS Safety Report 23932551 (Version 1)
Quarter: 2024Q2

REPORT INFORMATION
  Report Type: Spontaneous
  Country: US (occurrence: None)
  Receive Date: 20240531
  Receipt Date: 20240531
  Transmission Date: 20240716
  Serious: Yes (Life-Threatening, Disabling)
  Sender: FDA-Public Use
  Company Number: None

PATIENT
  Age: 40 Year
  Sex: Female
  Weight: 92.25 kg

DRUGS (5)
  1. LEVOFLOXACIN [Suspect]
     Active Substance: LEVOFLOXACIN
     Indication: Upper respiratory tract infection
     Dosage: 5 TABLETS DAILY ORAL?
     Route: 048
     Dates: start: 20240502, end: 20240505
  2. LEVOFLOXACIN [Suspect]
     Active Substance: LEVOFLOXACIN
     Indication: Sinusitis
  3. VYVANSE [Concomitant]
     Active Substance: LISDEXAMFETAMINE DIMESYLATE
  4. DEVICE [Concomitant]
     Active Substance: DEVICE
  5. IBUPROFEN [Concomitant]
     Active Substance: IBUPROFEN

REACTIONS (23)
  - Dyspepsia [None]
  - Dysphagia [None]
  - Vomiting [None]
  - Fatigue [None]
  - Tendon disorder [None]
  - Muscular weakness [None]
  - Muscle spasms [None]
  - Cognitive disorder [None]
  - Memory impairment [None]
  - Gait disturbance [None]
  - Headache [None]
  - Pain [None]
  - Blepharospasm [None]
  - Tinnitus [None]
  - Hypoaesthesia [None]
  - Hypoaesthesia [None]
  - Depression [None]
  - Anxiety [None]
  - Paranoia [None]
  - Chest pain [None]
  - Abdominal discomfort [None]
  - Diarrhoea [None]
  - Constipation [None]

NARRATIVE: CASE EVENT DATE: 20240505
